FAERS Safety Report 7576322-2 (Version None)
Quarter: 2011Q2

REPORT INFORMATION
  Report Type: 
  Country: None (occurrence: None)
  Receive Date: 20110628
  Receipt Date: 20110509
  Transmission Date: 20111010
  Serious: Yes (Other)
  Sender: FDA-Public Use
  Company Number: US-BAYER-201038938NA

PATIENT
  Sex: Female
  Weight: 81.633 kg

DRUGS (11)
  1. YASMIN [Suspect]
     Indication: CONTRACEPTION
     Route: 048
     Dates: start: 20051101
  2. METRONIDAZOLE [Concomitant]
     Dosage: 500 MG, BID
  3. DROSPIRENONE AND ETHINYL ESTRADIOL [Suspect]
     Dosage: 1 DF, QD
     Dates: start: 20040101, end: 20090101
  4. IBUPROFEN [Concomitant]
     Dosage: 800 MG, TID
  5. HYDROCODONE BITARTRATE AND ACETAMINOPHEN [Concomitant]
     Dosage: 500 MG, PRN
  6. CYCLOBENZAPRINE [Concomitant]
     Dosage: 10 MG, QD
  7. YAZ [Suspect]
     Dosage: 1 DF, QD
     Dates: start: 20040101, end: 20090101
  8. ZYRTEC [Concomitant]
     Dosage: UNK UNK, QD
  9. YASMIN [Suspect]
     Indication: PREMENSTRUAL SYNDROME
     Dosage: 1 DF, QD
     Dates: start: 20040101, end: 20090101
  10. YASMIN [Suspect]
  11. SINGULAIR [Concomitant]
     Dosage: 10 MG, QD

REACTIONS (2)
  - CHOLELITHIASIS [None]
  - GALLBLADDER NON-FUNCTIONING [None]
